FAERS Safety Report 24102882 (Version 1)
Quarter: 2024Q3

REPORT INFORMATION
  Report Type: Spontaneous
  Country: US (occurrence: US)
  Receive Date: 20240717
  Receipt Date: 20240717
  Transmission Date: 20241016
  Serious: Yes (Other)
  Sender: NOVO NORDISK
  Company Number: US-NOVOPROD-1157289

PATIENT
  Age: 22 Year
  Sex: Male

DRUGS (1)
  1. OZEMPIC [Suspect]
     Active Substance: SEMAGLUTIDE
     Indication: Obesity
     Dosage: 1 MG, QW
     Route: 058
     Dates: start: 20230107, end: 20231212

REACTIONS (9)
  - Ileus [Recovered/Resolved]
  - Impaired gastric emptying [Recovered/Resolved]
  - Pancreatitis [Recovered/Resolved]
  - Enteritis [Unknown]
  - Lipase increased [Unknown]
  - Constipation [Unknown]
  - Abdominal pain [Unknown]
  - Eructation [Unknown]
  - Product use in unapproved indication [Recovered/Resolved]

NARRATIVE: CASE EVENT DATE: 20230101
